FAERS Safety Report 15858710 (Version 1)
Quarter: 2019Q1

REPORT INFORMATION
  Report Type: Spontaneous
  Country: US (occurrence: US)
  Receive Date: 20190123
  Receipt Date: 20190123
  Transmission Date: 20190417
  Serious: Yes (Disabling)
  Sender: FDA-Public Use
  Company Number: None

PATIENT
  Age: 29 Year
  Sex: Female
  Weight: 67.5 kg

DRUGS (1)
  1. CLONAZEPAM. [Suspect]
     Active Substance: CLONAZEPAM
     Indication: ANXIETY
     Route: 048
     Dates: start: 20130101, end: 20180101

REACTIONS (13)
  - Drug ineffective [None]
  - Hallucination [None]
  - Withdrawal syndrome [None]
  - Impaired driving ability [None]
  - Impaired work ability [None]
  - Pain [None]
  - Sinusitis [None]
  - Insomnia [None]
  - Depression [None]
  - Cystitis interstitial [None]
  - Anxiety [None]
  - Product use issue [None]
  - Feeling abnormal [None]

NARRATIVE: CASE EVENT DATE: 20180101
